FAERS Safety Report 19924469 (Version 1)
Quarter: 2021Q4

REPORT INFORMATION
  Report Type: Report from Study
  Country: US (occurrence: US)
  Receive Date: 20211006
  Receipt Date: 20211006
  Transmission Date: 20220303
  Serious: Yes (Other)
  Sender: FDA-Public Use
  Company Number: US-CLOVIS ONCOLOGY-CLO-2021-001013

PATIENT
  Sex: Female

DRUGS (2)
  1. RUBRACA [Suspect]
     Active Substance: RUCAPARIB CAMSYLATE
     Indication: Ovarian cancer
     Dosage: 600 MG IN THE AM, 300 MG PM
     Route: 048
     Dates: start: 20190523
  2. RUBRACA [Suspect]
     Active Substance: RUCAPARIB CAMSYLATE
     Dosage: 200MG QAM, 400MG QPM
     Route: 048
     Dates: start: 20180523

REACTIONS (2)
  - Myelosuppression [Unknown]
  - Full blood count abnormal [Unknown]
